FAERS Safety Report 18264417 (Version 1)
Quarter: 2020Q3

REPORT INFORMATION
  Report Type: Spontaneous
  Country: DE (occurrence: DE)
  Receive Date: 20200914
  Receipt Date: 20200914
  Transmission Date: 20201103
  Serious: Yes (Hospitalization, Other)
  Sender: FDA-Public Use
  Company Number: DE-PFIZER INC-2020351120

PATIENT
  Age: 13 Year
  Sex: Female
  Weight: 65 kg

DRUGS (4)
  1. IBUPROFEN. [Suspect]
     Active Substance: IBUPROFEN
     Indication: SUICIDAL IDEATION
     Dosage: 2000 MG, 1X/DAY DAILY DOSE: 2000 MG MILLGRAM(S) EVERY DAYS 5 SEPARATED DOSES
     Route: 048
     Dates: end: 20190404
  2. BUSCOPAN PLUS [Suspect]
     Active Substance: ACETAMINOPHEN\BUTYLSCOPOLAMINE BROMIDE
     Indication: SUICIDAL IDEATION
     Dosage: 150 MG, 1X/DAY, DAILY DOSE: 150 MG MILLGRAM(S) EVERY DAYS 15 SEPARATED DOSES
     Route: 048
     Dates: end: 20190406
  3. BUTYLSCOPOLAMINE [Suspect]
     Active Substance: BUTYLSCOPOLAMINE
     Dosage: UNK
  4. PARACETAMOL [Suspect]
     Active Substance: ACETAMINOPHEN
     Indication: SUICIDAL IDEATION
     Dosage: 2000 MG, 1X/DAY DAILY DOSE: 2000 MG MILLGRAM(S) EVERY DAYS 4 SEPARATED DOSES
     Route: 048
     Dates: end: 20190404

REACTIONS (3)
  - Toxicity to various agents [Unknown]
  - Intentional overdose [Unknown]
  - Suicidal ideation [Unknown]

NARRATIVE: CASE EVENT DATE: 20190406
